FAERS Safety Report 6413549-7 (Version None)
Quarter: 2009Q4

REPORT INFORMATION
  Report Type: 
  Country: None (occurrence: None)
  Receive Date: 20091026
  Receipt Date: 20091013
  Transmission Date: 20100525
  Serious: Yes (Hospitalization, Other)
  Sender: FDA-Public Use
  Company Number: PHHY2009CL16450

PATIENT
  Age: 79 Year
  Sex: Female

DRUGS (4)
  1. TAREG [Suspect]
     Indication: HYPERTENSION
     Dosage: 1 TABLET (80 MG ) PER DAY
     Dates: start: 20090301
  2. NEO-SINTROM [Concomitant]
     Dosage: 1 TABLET PER DAY
  3. DIGOXIN [Concomitant]
     Dosage: 1 TABLET PER DAY
  4. HYDROCHLOROTHIAZIDE [Concomitant]
     Dosage: 1 TABLET PER DAY

REACTIONS (3)
  - ANGINA PECTORIS [None]
  - CARDIAC PACEMAKER INSERTION [None]
  - EXTRASYSTOLES [None]
